FAERS Safety Report 6607026-8 (Version None)
Quarter: 2010Q1

REPORT INFORMATION
  Report Type: 
  Country: None (occurrence: None)
  Receive Date: 20100226
  Receipt Date: 20100221
  Transmission Date: 20100710
  Serious: Yes (Other)
  Sender: FDA-Public Use
  Company Number: HU-AMGEN-UK384260

PATIENT
  Sex: Female
  Weight: 54 kg

DRUGS (6)
  1. NPLATE [Suspect]
     Indication: IDIOPATHIC THROMBOCYTOPENIC PURPURA
     Route: 058
     Dates: start: 20090826
  2. METOPROLOL TARTRATE [Concomitant]
     Route: 048
  3. METHYLPREDNISOLONE [Concomitant]
     Route: 048
  4. SIMVASTATIN [Concomitant]
     Route: 048
  5. FUROSEMIDE [Concomitant]
     Route: 048
  6. SPIRONOLACTONE [Concomitant]
     Route: 048

REACTIONS (8)
  - COAGULATION FACTOR VIII LEVEL INCREASED [None]
  - CRYOFIBRINOGENAEMIA [None]
  - DRY GANGRENE [None]
  - EMBOLISM [None]
  - PLATELET COUNT ABNORMAL [None]
  - SKIN DISCOLOURATION [None]
  - VON WILLEBRAND'S FACTOR ACTIVITY INCREASED [None]
  - VON WILLEBRAND'S FACTOR ANTIGEN INCREASED [None]
